FAERS Safety Report 20613664 (Version 1)
Quarter: 2022Q1

REPORT INFORMATION
  Report Type: Spontaneous
  Country: US (occurrence: US)
  Receive Date: 20220319
  Receipt Date: 20220319
  Transmission Date: 20220423
  Serious: Yes (Death, Other)
  Sender: FDA-Public Use
  Company Number: US-ALVOGEN-2022-ALVOGEN-119107

PATIENT
  Age: 25 Year
  Sex: Male

DRUGS (3)
  1. FENTANYL [Suspect]
     Active Substance: FENTANYL
     Indication: Intentional product misuse
     Dosage: MCG/HR
  2. CANNABIS SATIVA FLOWERING TOP [Suspect]
     Active Substance: CANNABIS SATIVA FLOWERING TOP
     Indication: Intentional product misuse
  3. ZONISAMIDE [Suspect]
     Active Substance: ZONISAMIDE
     Indication: Intentional product misuse

REACTIONS (1)
  - Intentional product misuse [Fatal]
